FAERS Safety Report 4994680-X (Version None)
Quarter: 2006Q2

REPORT INFORMATION
  Report Type: 
  Country: None (occurrence: None)
  Receive Date: 20060505
  Receipt Date: 20060425
  Transmission Date: 20061013
  Serious: Yes (Disabling, Other)
  Sender: FDA-Public Use
  Company Number: US-MERCK-0604USA04036

PATIENT
  Age: 60 Year
  Sex: Female
  Weight: 75 kg

DRUGS (12)
  1. VIOXX [Suspect]
     Indication: ARTHRITIS
     Route: 048
     Dates: start: 20010401, end: 20040901
  2. PREMARIN [Concomitant]
     Route: 065
  3. METHOCARBAMOL [Concomitant]
     Route: 065
  4. NEURONTIN [Concomitant]
     Route: 065
  5. PREVACID [Concomitant]
     Route: 048
  6. CELEBREX [Suspect]
     Route: 065
  7. TOPROL-XL [Concomitant]
     Route: 048
  8. ZYRTEC [Concomitant]
     Route: 065
  9. MICARDIS [Concomitant]
     Route: 065
  10. LIPITOR [Concomitant]
     Route: 065
  11. CLONIDINE [Concomitant]
     Route: 065
  12. COLCHICINE [Concomitant]
     Route: 065

REACTIONS (2)
  - ANKLE FRACTURE [None]
  - CEREBROVASCULAR ACCIDENT [None]
